FAERS Safety Report 23868312 (Version 1)
Quarter: 2024Q2

REPORT INFORMATION
  Report Type: Spontaneous
  Country: US (occurrence: None)
  Receive Date: 20240516
  Receipt Date: 20240516
  Transmission Date: 20240716
  Serious: Yes (Life-Threatening, Hospitalization, Other)
  Sender: FDA-Public Use
  Company Number: None

PATIENT
  Age: 74 Year
  Sex: Male
  Weight: 93 kg

DRUGS (4)
  1. GLUCOPHAGE [Suspect]
     Active Substance: METFORMIN HYDROCHLORIDE
     Indication: Type 2 diabetes mellitus
     Dosage: FREQUENCY : TWICE A DAY;?
     Route: 048
     Dates: start: 20220709, end: 20240323
  2. FARXIGA [Concomitant]
  3. OZEMPIC [Concomitant]
  4. GLIMEPIRIDE [Concomitant]

REACTIONS (9)
  - Renal impairment [None]
  - Nausea [None]
  - Vomiting [None]
  - Urticaria [None]
  - Asthenia [None]
  - Syncope [None]
  - Hypotension [None]
  - Blood potassium increased [None]
  - Blood lactic acid abnormal [None]

NARRATIVE: CASE EVENT DATE: 20240323
